FAERS Safety Report 17869720 (Version 1)
Quarter: 2020Q2

REPORT INFORMATION
  Report Type: Spontaneous
  Country: IL (occurrence: IL)
  Receive Date: 20200608
  Receipt Date: 20200608
  Transmission Date: 20200714
  Serious: Yes (Other)
  Sender: FDA-Public Use
  Company Number: IL-SA-2020SA143685

PATIENT

DRUGS (1)
  1. PRALUENT [Suspect]
     Active Substance: ALIROCUMAB
     Indication: TYPE IIA HYPERLIPIDAEMIA
     Dosage: UNK
     Route: 058

REACTIONS (4)
  - Pulmonary oedema [Unknown]
  - Blood pressure increased [Unknown]
  - Hypersensitivity [Unknown]
  - Chest pain [Unknown]
